FAERS Safety Report 10812360 (Version 1)
Quarter: 2015Q1

REPORT INFORMATION
  Report Type: Spontaneous
  Country: US (occurrence: US)
  Receive Date: 20150218
  Receipt Date: 20150218
  Transmission Date: 20150721
  Serious: Yes (Other)
  Sender: FDA-Public Use
  Company Number: US-AMGEN-USASP2015014054

PATIENT
  Age: 51 Year
  Sex: Female

DRUGS (1)
  1. ENBREL [Suspect]
     Active Substance: ETANERCEPT
     Indication: SWEAT GLAND DISORDER
     Dosage: 50 MG, QWK
     Route: 065
     Dates: start: 20140201, end: 201412

REACTIONS (2)
  - Vaginal lesion [Recovered/Resolved]
  - Breast mass [Not Recovered/Not Resolved]
